FAERS Safety Report 10007666 (Version 1)
Quarter: 2014Q1

REPORT INFORMATION
  Report Type: Spontaneous
  Country: US (occurrence: None)
  Receive Date: 20140228
  Receipt Date: 20140228
  Transmission Date: 20141002
  Serious: Yes (Other)
  Sender: FDA-Public Use
  Company Number: 224987

PATIENT
  Sex: Male

DRUGS (1)
  1. PICATO [Suspect]
     Indication: ACTINIC KERATOSIS
     Dosage: (FOR 3 DAYS), TOPICAL
     Route: 061
     Dates: start: 20131107, end: 20131109

REACTIONS (4)
  - Application site vesicles [None]
  - Application site erythema [None]
  - Drug ineffective [None]
  - Inappropriate schedule of drug administration [None]
